FAERS Safety Report 5108044-1 (Version None)
Quarter: 2006Q3

REPORT INFORMATION
  Report Type: 
  Country: None (occurrence: None)
  Receive Date: 20060919
  Receipt Date: 20060911
  Transmission Date: 20061208
  Serious: Yes (Other)
  Sender: FDA-Public Use
  Company Number: 2006GB01622

PATIENT
  Age: 72 Year
  Sex: Male

DRUGS (3)
  1. ATENOLOL [Suspect]
     Route: 048
     Dates: start: 20060309, end: 20060312
  2. BEZALIP MONO [Concomitant]
     Route: 048
  3. COZAAR [Concomitant]
     Route: 048

REACTIONS (4)
  - BREATH SOUNDS ABNORMAL [None]
  - DYSPNOEA [None]
  - HEADACHE [None]
  - PERIPHERAL COLDNESS [None]
